FAERS Safety Report 7860024-9 (Version None)
Quarter: 2011Q4

REPORT INFORMATION
  Report Type: 
  Country: None (occurrence: None)
  Receive Date: 20111025
  Receipt Date: 20111013
  Transmission Date: 20120403
  Serious: Yes (Hospitalization)
  Sender: FDA-Public Use
  Company Number: ACO_27328_2011

PATIENT
  Sex: Female

DRUGS (2)
  1. FAMPYRA (DALFAMPRIDINE) TABLET, 10MG [Suspect]
     Indication: GAIT DISTURBANCE
     Dosage: BID, ORAL
     Route: 048
     Dates: end: 20110101
  2. FLUOXETINE HYDROCHLORIDE [Concomitant]

REACTIONS (4)
  - MANIA [None]
  - HALLUCINATION [None]
  - EUPHORIC MOOD [None]
  - OVERDOSE [None]
